FAERS Safety Report 8065088-8 (Version None)
Quarter: 2011Q4

REPORT INFORMATION
  Report Type: 
  Country: None (occurrence: None)
  Receive Date: 20111221
  Receipt Date: 20110718
  Transmission Date: 20120403
  Serious: Yes (Hospitalization)
  Sender: FDA-Public Use
  Company Number: PHHY2011US55970

PATIENT
  Age: 81 Year
  Sex: Male
  Weight: 89.3 kg

DRUGS (3)
  1. EXJADE [Suspect]
     Indication: IRON OVERLOAD
     Dosage: 1500 MG, ORAL
     Route: 048
     Dates: start: 20100801
  2. EXJADE [Suspect]
     Indication: MYELODYSPLASTIC SYNDROME
     Dosage: 1500 MG, ORAL
     Route: 048
     Dates: start: 20100801
  3. EXJADE [Suspect]
     Indication: TRANSFUSION
     Dosage: 1500 MG, ORAL
     Route: 048
     Dates: start: 20100801

REACTIONS (2)
  - RENAL IMPAIRMENT [None]
  - BLOOD CREATININE INCREASED [None]
